FAERS Safety Report 4622120-9 (Version None)
Quarter: 2005Q1

REPORT INFORMATION
  Report Type: 
  Country: None (occurrence: None)
  Receive Date: 20050329
  Receipt Date: 20050314
  Transmission Date: 20050727
  Serious: Yes (Hospitalization, Other)
  Sender: FDA-Public Use
  Company Number: 001-0945-980292

PATIENT
  Age: 51 Year
  Sex: Male

DRUGS (8)
  1. NEURONTIN [Suspect]
     Indication: PAIN
     Dosage: 1200 MG (300 MG, 4 IN 1 D), ORAL
     Route: 048
     Dates: start: 19960919, end: 19980319
  2. ALL OTHER THERAPUTIC PRODUCTS (ALL OTHER THERAPEUTIC PRODUCTS) [Suspect]
     Indication: ILL-DEFINED DISORDER
  3. CARISOPRODOL [Concomitant]
  4. HYDROCODONE BITARTRATE [Concomitant]
  5. AMITRIPTYLINE HCL [Concomitant]
  6. FLUOXETINE HCL [Concomitant]
  7. DOXEPIN HCL [Concomitant]
  8. BROMFENAC SODIUM (BROMFENAC SODIUM) [Concomitant]

REACTIONS (36)
  - ACUTE RESPIRATORY DISTRESS SYNDROME [None]
  - ADENOMA BENIGN [None]
  - ANAEMIA [None]
  - ANAESTHETIC COMPLICATION NEUROLOGICAL [None]
  - CARDIOVASCULAR DECONDITIONING [None]
  - CHEST PAIN [None]
  - CHRONIC OBSTRUCTIVE PULMONARY DISEASE [None]
  - COAGULOPATHY [None]
  - DELIRIUM [None]
  - DEPRESSION [None]
  - DYSGEUSIA [None]
  - DYSURIA [None]
  - ENCEPHALOPATHY [None]
  - EPIDIDYMITIS [None]
  - FEELING ABNORMAL [None]
  - HEADACHE [None]
  - HEMIPARESIS [None]
  - HYPERNATRAEMIA [None]
  - HYPOGLYCAEMIA [None]
  - HYPOKALAEMIA [None]
  - INFLUENZA LIKE ILLNESS [None]
  - INSOMNIA [None]
  - MALNUTRITION [None]
  - MUSCLE ATROPHY [None]
  - MUSCULAR WEAKNESS [None]
  - PAIN [None]
  - PANCREATITIS ACUTE [None]
  - PNEUMONIA MYCOPLASMAL [None]
  - PNEUMONITIS [None]
  - RENAL FAILURE [None]
  - RESPIRATORY FAILURE [None]
  - SEPSIS [None]
  - SUICIDAL IDEATION [None]
  - SWOLLEN TONGUE [None]
  - UPPER RESPIRATORY TRACT INFECTION [None]
  - VIRAL INFECTION [None]
